FAERS Safety Report 11744424 (Version 1)
Quarter: 2015Q4

REPORT INFORMATION
  Report Type: Spontaneous
  Country: JP (occurrence: JP)
  Receive Date: 20151116
  Receipt Date: 20151116
  Transmission Date: 20160304
  Serious: Yes (Hospitalization)
  Sender: FDA-Public Use
  Company Number: JP-BAYER-2015-461333

PATIENT
  Sex: Male

DRUGS (2)
  1. WARFARIN POTASSIUM [Interacting]
     Active Substance: WARFARIN POTASSIUM
     Indication: DEEP VEIN THROMBOSIS
     Route: 048
  2. ACETYLSALICYLIC ACID({=100 MG) [Suspect]
     Active Substance: ASPIRIN
     Indication: CEREBRAL INFARCTION
     Route: 048

REACTIONS (8)
  - Rectal adenoma [None]
  - Haemorrhage [None]
  - Pneumoretroperitoneum [None]
  - Large intestine perforation [None]
  - Anaemia [None]
  - Chills [None]
  - Pyrexia [None]
  - Labelled drug-drug interaction medication error [None]
